FAERS Safety Report 24528951 (Version 1)
Quarter: 2024Q4

REPORT INFORMATION
  Report Type: Spontaneous
  Country: IE (occurrence: IE)
  Receive Date: 20241021
  Receipt Date: 20241021
  Transmission Date: 20250114
  Serious: Yes (Death, Other)
  Sender: PFIZER
  Company Number: IE-PFIZER INC-PV202400135017

PATIENT
  Sex: Female

DRUGS (2)
  1. PALBOCICLIB [Suspect]
     Active Substance: PALBOCICLIB
     Dosage: 125 MG
     Dates: start: 202309
  2. FULVESTRANT [Suspect]
     Active Substance: FULVESTRANT

REACTIONS (2)
  - Tuberculosis [Fatal]
  - Neutrophil count decreased [Unknown]
